FAERS Safety Report 5563308-2 (Version None)
Quarter: 2007Q4

REPORT INFORMATION
  Report Type: 
  Country: None (occurrence: None)
  Receive Date: 20071217
  Receipt Date: 20071206
  Transmission Date: 20080405
  Serious: Yes (Other)
  Sender: FDA-Public Use
  Company Number: US-TYCO HEALTHCARE/MALLINCKRODT-T200701519

PATIENT

DRUGS (12)
  1. OPTIMARK [Suspect]
     Indication: NUCLEAR MAGNETIC RESONANCE IMAGING
     Dosage: 20 ML, SINGLE
     Route: 042
     Dates: start: 20070124, end: 20070124
  2. ALOPURINOL                         /00003301/ [Concomitant]
     Dosage: 50 MG, QD
  3. ASPIRIN [Concomitant]
     Dosage: UNK, UNK
  4. FUROSEMIDE [Concomitant]
     Dosage: UNK, UNK
  5. CLONIDINE [Concomitant]
     Dosage: .3 MG, AFTERNOON AND BEDTIME
  6. COREG [Concomitant]
     Dosage: 25 MG, BID, SUPPER
  7. HYDRALAZINE [Concomitant]
     Dosage: 50 MG, 3 A DAY-AFTERNOON AND BEDTIME
  8. ZOLOFT [Concomitant]
     Dosage: 50 MG, QD
  9. RENAGEL                            /01459901/ [Concomitant]
     Dosage: 800 MG, 3 EA WITH MEALS, 2 EA WITH SNACKS
  10. LIPITOR [Concomitant]
     Dosage: 10 MG, QD AT BEDTIME
  11. VITAMIN B12                        /00056201/ [Concomitant]
     Dosage: UNK, QD
  12. INSULIN [Concomitant]
     Dosage: 30 UNITS AT 8 AM AND 26 UNITS AT ABOUT 6-7 PM

REACTIONS (1)
  - NEPHROGENIC SYSTEMIC FIBROSIS [None]
